FAERS Safety Report 8568085-9 (Version None)
Quarter: 2012Q3

REPORT INFORMATION
  Report Type: 
  Country: None (occurrence: None)
  Receive Date: 20120803
  Receipt Date: 20120724
  Transmission Date: 20120928
  Serious: No
  Sender: FDA-Public Use
  Company Number: US-ABBOTT-12P-163-0959351-00

PATIENT
  Sex: Female
  Weight: 83.99 kg

DRUGS (3)
  1. PRAVASTATIN [Concomitant]
     Indication: PRODUCT USED FOR UNKNOWN INDICATION
  2. FLUID PILL [Concomitant]
     Indication: PRODUCT USED FOR UNKNOWN INDICATION
  3. NIASPAN [Suspect]
     Indication: BLOOD CHOLESTEROL INCREASED
     Dates: start: 20120701

REACTIONS (5)
  - HERPES ZOSTER [None]
  - PRURITUS [None]
  - PAIN [None]
  - FEELING HOT [None]
  - URTICARIA [None]
